FAERS Safety Report 5063065-2 (Version None)
Quarter: 2006Q3

REPORT INFORMATION
  Report Type: 
  Country: None (occurrence: None)
  Receive Date: 20060725
  Receipt Date: 20060725
  Transmission Date: 20061208
  Serious: Yes (Hospitalization)
  Sender: FDA-Public Use
  Company Number: None

PATIENT
  Age: 50 Year
  Sex: Male
  Weight: 89.8122 kg

DRUGS (17)
  1. PREDNISONE [Suspect]
     Indication: DERMATITIS CONTACT
     Dosage: 40 MG TO 5MG TAPER DAILY PO
     Route: 048
     Dates: start: 20060707, end: 20060715
  2. DICLOFENAC [Concomitant]
  3. GLYBURIDE [Concomitant]
  4. HYDROCODONE [Concomitant]
  5. HYDROXYZINE [Concomitant]
  6. PAMOATE [Concomitant]
  7. METHOCARBAMOL [Concomitant]
  8. METHYLPREDNISOLONE [Concomitant]
  9. OLANZAPINE [Concomitant]
  10. OMEPRAZOLE [Concomitant]
  11. SERTRALINE HCL [Concomitant]
  12. VARDENAFIL [Concomitant]
  13. ALBUTEROL SPIROS [Concomitant]
  14. AZITHROMYCIN [Concomitant]
  15. PSEUDO 60/TRIPROLIDINE [Concomitant]
  16. DM 10/GUAIFENESIN [Concomitant]
  17. PREDNISONE [Concomitant]

REACTIONS (15)
  - AMNESIA [None]
  - ASTHENIA [None]
  - DRUG DOSE OMISSION [None]
  - DRY MOUTH [None]
  - FALL [None]
  - FATIGUE [None]
  - FEELING ABNORMAL [None]
  - HYPERGLYCAEMIA [None]
  - HYPERPHAGIA [None]
  - LOSS OF CONSCIOUSNESS [None]
  - NOCTURIA [None]
  - POLLAKIURIA [None]
  - POLYDIPSIA [None]
  - POLYURIA [None]
  - TREATMENT NONCOMPLIANCE [None]
